FAERS Safety Report 12091068 (Version 1)
Quarter: 2016Q1

REPORT INFORMATION
  Report Type: Spontaneous
  Country: SE (occurrence: SE)
  Receive Date: 20160218
  Receipt Date: 20160218
  Transmission Date: 20160526
  Serious: Yes (Hospitalization, Other)
  Sender: FDA-Public Use
  Company Number: SE-PFIZER INC-2014084515

PATIENT
  Age: 40 Year
  Sex: Female

DRUGS (7)
  1. STILNOCT [Concomitant]
     Active Substance: ZOLPIDEM TARTRATE
     Dosage: UNK, AS NEEDED
  2. LYRICA [Suspect]
     Active Substance: PREGABALIN
     Dosage: 150 MG, 2X/DAY
     Dates: start: 20130307
  3. PROPAVAN [Concomitant]
     Active Substance: PROPIOMAZINE
     Dosage: UNK
  4. VENLAFAXIN ACTAVIS [Concomitant]
     Active Substance: VENLAFAXINE HYDROCHLORIDE
     Dosage: UNK
  5. CIRCADIN [Concomitant]
     Active Substance: MELATONIN
     Dosage: UNK
  6. SOBRIL [Concomitant]
     Active Substance: OXAZEPAM
     Dosage: UNK, AS NEEDED
  7. IMOVANE [Concomitant]
     Active Substance: ZOPICLONE
     Dosage: UNK, AS NEEDED

REACTIONS (3)
  - Headache [Unknown]
  - Papilloedema [Unknown]
  - Visual field defect [Unknown]

NARRATIVE: CASE EVENT DATE: 2014
